FAERS Safety Report 20725804 (Version 1)
Quarter: 2022Q2

REPORT INFORMATION
  Report Type: Spontaneous
  Country: US (occurrence: None)
  Receive Date: 20220419
  Receipt Date: 20220419
  Transmission Date: 20220720
  Serious: Yes (Disabling)
  Sender: FDA-Public Use
  Company Number: None

PATIENT
  Age: 18 Year
  Sex: Male
  Weight: 48.6 kg

DRUGS (1)
  1. DYNACIN [Suspect]
     Active Substance: MINOCYCLINE HYDROCHLORIDE
     Indication: Acne
     Dosage: FREQUENCY : TWICE A DAY;?
     Route: 048

REACTIONS (6)
  - Depression [None]
  - Depersonalisation/derealisation disorder [None]
  - Anxiety [None]
  - Emotional distress [None]
  - Suicidal ideation [None]
  - Rash [None]

NARRATIVE: CASE EVENT DATE: 20220225
